FAERS Safety Report 5360669-4 (Version None)
Quarter: 2007Q2

REPORT INFORMATION
  Report Type: 
  Country: None (occurrence: None)
  Receive Date: 20070618
  Receipt Date: 20070612
  Transmission Date: 20071010
  Serious: Yes (Hospitalization)
  Sender: FDA-Public Use
  Company Number: US-MERCK-0608USA05746

PATIENT
  Age: 57 Year
  Sex: Female

DRUGS (7)
  1. FOSAMAX [Suspect]
     Indication: OSTEOPENIA
     Route: 048
     Dates: start: 20011110, end: 20031101
  2. FOSAMAX [Suspect]
     Indication: OSTEOPOROSIS
     Route: 048
     Dates: start: 20011110, end: 20031101
  3. ACTONEL [Concomitant]
     Route: 065
     Dates: start: 20031101, end: 20050701
  4. [THERAPY UNSPECIFIED] [Concomitant]
     Indication: HYPERTENSION
     Route: 065
     Dates: start: 19950101
  5. PAXIL [Concomitant]
     Route: 065
  6. HORMONES (UNSPECIFIED) [Concomitant]
     Route: 065
  7. CALTRATE PLUS [Concomitant]
     Route: 065

REACTIONS (25)
  - ANAEMIA [None]
  - BACK PAIN [None]
  - BONE DENSITY DECREASED [None]
  - BONE MARROW DISORDER [None]
  - BOWEN'S DISEASE [None]
  - COLONIC POLYP [None]
  - DIVERTICULUM [None]
  - DYSPNOEA [None]
  - FALL [None]
  - GASTRITIS [None]
  - GASTROINTESTINAL HAEMORRHAGE [None]
  - HAEMORRHOIDS [None]
  - HIATUS HERNIA [None]
  - HYPERLIPIDAEMIA [None]
  - HYPOTENSION [None]
  - METABOLIC ACIDOSIS [None]
  - NAUSEA [None]
  - ORTHOSTATIC HYPOTENSION [None]
  - OSTEONECROSIS [None]
  - PANCREATITIS [None]
  - PANCYTOPENIA [None]
  - PEPTIC ULCER [None]
  - PERNICIOUS ANAEMIA [None]
  - UPPER LIMB FRACTURE [None]
  - VOMITING [None]
